FAERS Safety Report 16523182 (Version 2)
Quarter: 2020Q1

REPORT INFORMATION
  Report Type: Spontaneous
  Country: US (occurrence: US)
  Receive Date: 20190703
  Receipt Date: 20200313
  Transmission Date: 20200409
  Serious: No
  Sender: FDA-Public Use
  Company Number: US-SHIRE-US201912134

PATIENT
  Age: 8 Year
  Sex: Female
  Weight: 24.94 kg

DRUGS (2)
  1. VYVANSE [Suspect]
     Active Substance: LISDEXAMFETAMINE DIMESYLATE
     Indication: ATTENTION DEFICIT/HYPERACTIVITY DISORDER
     Dosage: 30 MILLIGRAM, 1X/DAY:QD
     Route: 048
     Dates: start: 20190207, end: 20190307
  2. VYVANSE [Suspect]
     Active Substance: LISDEXAMFETAMINE DIMESYLATE
     Dosage: 20 MILLIGRAM, 1X/DAY:QD
     Route: 048
     Dates: start: 20190308

REACTIONS (6)
  - Drug ineffective [Unknown]
  - Product dose omission [Unknown]
  - Infusion site pain [Unknown]
  - Wrong technique in product usage process [Unknown]
  - Adverse event [Unknown]
  - Product physical issue [Unknown]

NARRATIVE: CASE EVENT DATE: 2019
